FAERS Safety Report 9831987 (Version 2)
Quarter: 2014Q2

REPORT INFORMATION
  Report Type: Spontaneous
  Country: SE (occurrence: SE)
  Receive Date: 20140121
  Receipt Date: 20140410
  Transmission Date: 20141212
  Serious: Yes (Hospitalization)
  Sender: FDA-Public Use
  Company Number: SE-JNJFOC-20140108427

PATIENT
  Age: 49 Year
  Sex: Male

DRUGS (12)
  1. SIMPONI [Suspect]
     Indication: PSORIATIC ARTHROPATHY
     Route: 058
  2. EBETREXAT [Concomitant]
     Route: 065
  3. IBUMETIN [Concomitant]
     Route: 065
  4. FURIX [Concomitant]
     Route: 065
  5. CITODON [Concomitant]
     Route: 065
  6. TROMBYL [Concomitant]
     Route: 065
  7. FOLIC ACID [Concomitant]
     Route: 065
  8. IMDUR [Concomitant]
     Route: 065
  9. METOPROLOL [Concomitant]
     Route: 065
  10. LOSARTAN [Concomitant]
     Route: 065
  11. ATORVASTATIN [Concomitant]
     Route: 065
  12. AMLODIPINE [Concomitant]
     Route: 065

REACTIONS (2)
  - Dyspnoea [Not Recovered/Not Resolved]
  - Cough [Not Recovered/Not Resolved]
